FAERS Safety Report 17334526 (Version 1)
Quarter: 2020Q1

REPORT INFORMATION
  Report Type: Spontaneous
  Country: US (occurrence: US)
  Receive Date: 20200128
  Receipt Date: 20200128
  Transmission Date: 20200409
  Serious: No
  Sender: FDA-Public Use
  Company Number: US-PARATEK PHARMACEUTICALS, INC.-2019PTK00122

PATIENT
  Age: 33 Year
  Sex: Male

DRUGS (1)
  1. NUZYRA [Suspect]
     Active Substance: OMADACYCLINE
     Indication: CYSTIC FIBROSIS
     Dosage: 150 MG, 1X/DAY
     Route: 048
     Dates: start: 20190927, end: 2019

REACTIONS (5)
  - Underdose [Recovered/Resolved]
  - Off label use [Recovered/Resolved]
  - Drug dose titration not performed [Recovered/Resolved]
  - Nausea [Unknown]
  - Vomiting [Unknown]

NARRATIVE: CASE EVENT DATE: 2019
